FAERS Safety Report 7000513-2 (Version None)
Quarter: 2010Q3

REPORT INFORMATION
  Report Type: 
  Country: None (occurrence: None)
  Receive Date: 20100920
  Receipt Date: 20100713
  Transmission Date: 20110219
  Serious: No
  Sender: FDA-Public Use
  Company Number: US-ASTRAZENECA-2007UW06357

PATIENT
  Age: 496 Month
  Sex: Female
  Weight: 81.6 kg

DRUGS (7)
  1. SEROQUEL [Suspect]
     Indication: SCHIZOPHRENIA, PARANOID TYPE
     Dosage: 300-700 MG
     Route: 048
     Dates: start: 20001201
  2. SEROQUEL [Suspect]
     Route: 048
     Dates: start: 20071201
  3. SEROQUEL [Suspect]
     Route: 048
     Dates: start: 20010901
  4. ZYPREXA [Suspect]
     Dates: start: 20020701
  5. METFORMIN [Concomitant]
     Dates: start: 20071214
  6. LISINOPRIL [Concomitant]
     Dates: start: 20071213
  7. GEODON [Concomitant]
     Dosage: 80-120 MG
     Dates: start: 20020801

REACTIONS (7)
  - CHEST PAIN [None]
  - HYPERTENSION [None]
  - NAUSEA [None]
  - PYREXIA [None]
  - TYPE 2 DIABETES MELLITUS [None]
  - URINARY TRACT INFECTION [None]
  - VOMITING [None]
